FAERS Safety Report 9217919 (Version 7)
Quarter: 2013Q2

REPORT INFORMATION
  Report Type: Spontaneous
  Country: CO (occurrence: CO)
  Receive Date: 20130408
  Receipt Date: 20130627
  Transmission Date: 20140414
  Serious: Yes (Other)
  Sender: FDA-Public Use
  Company Number: CO-VERTEX PHARMACEUTICALS INC.-2013-004589

PATIENT
  Age: 77 Year
  Sex: Female
  Weight: 61 kg

DRUGS (3)
  1. INCIVO [Suspect]
     Indication: HEPATITIS C
     Dosage: 750 MG (375 MG X 2) EVERY 8 HOUR
     Route: 048
     Dates: start: 20130323, end: 20130613
  2. PEGYLATED INTERFERON ALFA-2A [Concomitant]
     Indication: HEPATITIS C
     Dosage: DOSAGE FORM: AMPOULES
     Route: 058
     Dates: start: 20130222
  3. RIBAVIRIN [Concomitant]
     Indication: HEPATITIS C
     Dosage: DOSAGE FORM: TABLET
     Route: 048
     Dates: start: 20130222

REACTIONS (10)
  - Haemoglobin abnormal [Not Recovered/Not Resolved]
  - Creatinine renal clearance abnormal [Unknown]
  - Rash [Unknown]
  - Eyelid oedema [Unknown]
  - Oedema peripheral [Unknown]
  - Haemoglobin decreased [Not Recovered/Not Resolved]
  - Oropharyngeal pain [Unknown]
  - Decreased appetite [Not Recovered/Not Resolved]
  - Dizziness [Unknown]
  - Asthenia [Unknown]
